FAERS Safety Report 21668311 (Version 1)
Quarter: 2022Q4

REPORT INFORMATION
  Report Type: Spontaneous
  Country: CN (occurrence: CN)
  Receive Date: 20221201
  Receipt Date: 20221201
  Transmission Date: 20230113
  Serious: Yes (Hospitalization)
  Sender: FDA-Public Use
  Company Number: CN-PFIZER INC-PV202200113815

PATIENT
  Age: 64 Year
  Sex: Male
  Weight: 50 kg

DRUGS (2)
  1. EPIRUBICIN [Suspect]
     Active Substance: EPIRUBICIN
     Indication: Osteosarcoma
     Dosage: 50 MG, 1X/DAY
     Route: 041
     Dates: start: 20221027, end: 20221029
  2. SODIUM CHLORIDE [Concomitant]
     Active Substance: SODIUM CHLORIDE
     Indication: Vehicle solution use
     Dosage: 100 ML, 1X/DAY
     Route: 041
     Dates: start: 20221027, end: 20221029

REACTIONS (6)
  - Myelosuppression [Recovered/Resolved]
  - Mouth ulceration [Recovered/Resolved]
  - Fatigue [Recovering/Resolving]
  - Mass [Unknown]
  - Blood pressure diastolic decreased [Unknown]
  - Off label use [Unknown]

NARRATIVE: CASE EVENT DATE: 20221027
